FAERS Safety Report 6302370-6 (Version None)
Quarter: 2009Q3

REPORT INFORMATION
  Report Type: 
  Country: None (occurrence: None)
  Receive Date: 20090810
  Receipt Date: 20090731
  Transmission Date: 20100115
  Serious: Yes (Other)
  Sender: FDA-Public Use
  Company Number: PHHY2009GB32129

PATIENT
  Age: 58 Year
  Sex: Female

DRUGS (5)
  1. TEGRETOL [Suspect]
     Indication: BIPOLAR DISORDER
     Dosage: 400 MG, BID
     Route: 048
  2. CETIRIZINE [Concomitant]
     Indication: SEASONAL ALLERGY
     Dosage: 10 MG, QD
     Route: 048
  3. LANSOPRAZOLE [Concomitant]
     Indication: HIATUS HERNIA
     Dosage: 40 MG, BID
     Route: 048
  4. PRAVASTATIN [Concomitant]
     Indication: BLOOD CHOLESTEROL INCREASED
     Dosage: 40 MG, QD
     Route: 048
  5. RAMIPRIL [Concomitant]
     Indication: HYPERTENSION
     Dosage: 5 MG, QD
     Route: 048

REACTIONS (5)
  - AGGRESSION [None]
  - CONFUSIONAL STATE [None]
  - FOOD INTERACTION [None]
  - HALLUCINATION [None]
  - MANIA [None]
